FAERS Safety Report 9421889 (Version 1)
Quarter: 2013Q3

REPORT INFORMATION
  Report Type: Spontaneous
  Country: US (occurrence: US)
  Receive Date: 20130726
  Receipt Date: 20130726
  Transmission Date: 20140515
  Serious: No
  Sender: FDA-Public Use
  Company Number: US-PFIZER INC-2013215465

PATIENT
  Age: 62 Year
  Sex: Male

DRUGS (1)
  1. XALATAN [Suspect]
     Dosage: ONE DROP IN EACH EYE
     Route: 047
     Dates: start: 201201

REACTIONS (2)
  - Eye irritation [Unknown]
  - Lacrimation increased [Unknown]
